FAERS Safety Report 9524878 (Version 1)
Quarter: 2013Q3

REPORT INFORMATION
  Report Type: Spontaneous
  Country: US (occurrence: None)
  Receive Date: 20130912
  Receipt Date: 20130912
  Transmission Date: 20140515
  Serious: Yes (Hospitalization)
  Sender: FDA-Public Use
  Company Number: 130298

PATIENT
  Age: 42 Year
  Sex: Female
  Weight: 92.99 kg

DRUGS (1)
  1. GOLYTELY [Suspect]
     Indication: COLONOSCOPY
     Dates: start: 20130903

REACTIONS (4)
  - Hypersensitivity [None]
  - Oedema peripheral [None]
  - Urticaria [None]
  - Dyspnoea [None]
